FAERS Safety Report 14975185 (Version 3)
Quarter: 2018Q3

REPORT INFORMATION
  Report Type: Spontaneous
  Country: FI (occurrence: FI)
  Receive Date: 20180605
  Receipt Date: 20180709
  Transmission Date: 20181010
  Serious: Yes (Other)
  Sender: FDA-Public Use
  Company Number: FI-ELI_LILLY_AND_COMPANY-FI201805011990

PATIENT
  Age: 58 Year
  Sex: Female

DRUGS (14)
  1. HUMALOG [Suspect]
     Active Substance: INSULIN LISPRO
     Indication: PRODUCT USED FOR UNKNOWN INDICATION
     Dosage: 22 IU, BID (MORNING, NOON)
     Route: 065
     Dates: start: 20180320
  2. HUMALOG [Suspect]
     Active Substance: INSULIN LISPRO
     Dosage: 16 IU, EACH EVENING
     Route: 065
     Dates: start: 20180326
  3. HUMALOG [Suspect]
     Active Substance: INSULIN LISPRO
     Dosage: 14 IU, EACH EVENING
     Route: 065
     Dates: start: 20180320
  4. METFORMIN [Concomitant]
     Active Substance: METFORMIN HYDROCHLORIDE
     Indication: PRODUCT USED FOR UNKNOWN INDICATION
     Dosage: 2 DF, BID
  5. PANACOD [Concomitant]
     Active Substance: ACETAMINOPHEN\CODEINE PHOSPHATE
     Indication: PAIN
  6. HUMALOG [Suspect]
     Active Substance: INSULIN LISPRO
     Dosage: 26 IU, EACH MORNING
     Route: 065
     Dates: start: 20180424, end: 201805
  7. ASA [Concomitant]
     Active Substance: ASPIRIN
     Indication: PRODUCT USED FOR UNKNOWN INDICATION
  8. HUMALOG [Suspect]
     Active Substance: INSULIN LISPRO
     Dosage: 24 IU, BID (MORNING, NOON)
     Route: 065
     Dates: start: 20180326
  9. HUMALOG [Suspect]
     Active Substance: INSULIN LISPRO
     Dosage: 32 IU, DAILY
     Route: 065
     Dates: start: 20180424, end: 201805
  10. ROSUVASTATIN. [Concomitant]
     Active Substance: ROSUVASTATIN
     Indication: PRODUCT USED FOR UNKNOWN INDICATION
     Dosage: 1 DF, DAILY
  11. PANADOL [Concomitant]
     Active Substance: ACETAMINOPHEN
     Indication: PAIN
  12. HUMALOG [Suspect]
     Active Substance: INSULIN LISPRO
     Dosage: 18 IU, EACH EVENING
     Route: 065
     Dates: start: 20180424, end: 20180504
  13. TOUJEO [Concomitant]
     Active Substance: INSULIN GLARGINE
     Indication: PRODUCT USED FOR UNKNOWN INDICATION
     Dosage: 80 IU, UNK
  14. BURANA [Concomitant]
     Active Substance: IBUPROFEN
     Indication: PAIN

REACTIONS (2)
  - Cough [Recovered/Resolved]
  - Dyspnoea [Recovered/Resolved]

NARRATIVE: CASE EVENT DATE: 20180320
